FAERS Safety Report 11271006 (Version 4)
Quarter: 2015Q3

REPORT INFORMATION
  Report Type: Spontaneous
  Country: US (occurrence: US)
  Receive Date: 20150714
  Receipt Date: 20150921
  Transmission Date: 20151125
  Serious: Yes (Hospitalization, Congenital Anomaly, Other)
  Sender: FDA-Public Use
  Company Number: US-APOTEX-2015AP008733

PATIENT
  Age: 0 Day
  Sex: Female
  Weight: 3.48 kg

DRUGS (3)
  1. PAXIL [Suspect]
     Active Substance: PAROXETINE HYDROCHLORIDE
     Indication: PRODUCT USED FOR UNKNOWN INDICATION
     Dosage: 10 MG, UNK
     Route: 064
     Dates: start: 20050901
  2. PRENATAL                           /00231801/ [Concomitant]
     Indication: PRODUCT USED FOR UNKNOWN INDICATION
     Dosage: 1 DF DAILY
     Route: 064
  3. AMOXICILLIN. [Concomitant]
     Active Substance: AMOXICILLIN
     Indication: PRODUCT USED FOR UNKNOWN INDICATION
     Dosage: 500 MG, TID
     Route: 064

REACTIONS (8)
  - Pierre Robin syndrome [Unknown]
  - Bradycardia [Unknown]
  - Micrognathia [Unknown]
  - Apnoea [Unknown]
  - Cleft palate [Unknown]
  - Cleft lip [Unknown]
  - Foetal exposure during pregnancy [Unknown]
  - Microgenia [Unknown]

NARRATIVE: CASE EVENT DATE: 20060421
